FAERS Safety Report 6153850-8 (Version None)
Quarter: 2009Q2

REPORT INFORMATION
  Report Type: 
  Country: None (occurrence: None)
  Receive Date: 20090414
  Receipt Date: 20090401
  Transmission Date: 20091009
  Serious: Yes (Hospitalization)
  Sender: FDA-Public Use
  Company Number: DE-RANBAXY-2009RR-23221

PATIENT
  Age: 60 Year
  Sex: Female
  Weight: 74 kg

DRUGS (6)
  1. IBUPROFEN [Suspect]
     Indication: PAIN
     Dosage: 400 UNK, UNK
     Dates: start: 20081001, end: 20090102
  2. CELEBREX [Suspect]
     Indication: PAIN
     Dosage: 100 UNK, UNK
     Route: 048
     Dates: start: 20081001, end: 20090102
  3. BISOPROLOL FUMARATE [Concomitant]
     Indication: HYPERTENSION
     Dosage: 5 UNK, UNK
     Route: 048
     Dates: start: 19890101
  4. FALITHROM ^HEXAL^ [Concomitant]
     Indication: ATRIAL FIBRILLATION
     Dosage: 1.5 UNK, UNK
     Route: 048
     Dates: start: 20081014, end: 20090213
  5. PANTOZOL [Concomitant]
     Indication: PROPHYLAXIS AGAINST GASTROINTESTINAL ULCER
     Dosage: 40 UNK, UNK
     Route: 048
     Dates: start: 20081001
  6. VALORON ^GOEDECKE^ [Concomitant]
     Indication: PAIN
     Dosage: 50 UNK, UNK
     Route: 048
     Dates: start: 20081001

REACTIONS (1)
  - COLITIS [None]
